FAERS Safety Report 6174806-5 (Version None)
Quarter: 2009Q2

REPORT INFORMATION
  Report Type: 
  Country: None (occurrence: None)
  Receive Date: 20090430
  Receipt Date: 20081114
  Transmission Date: 20091009
  Serious: No
  Sender: FDA-Public Use
  Company Number: US-ASTRAZENECA-2008UW25528

PATIENT
  Age: 77 Year
  Sex: Female
  Weight: 61.2 kg

DRUGS (2)
  1. NEXIUM [Suspect]
     Indication: GASTRIC DISORDER
     Route: 048
     Dates: start: 20081001
  2. ANTACID TAB [Concomitant]

REACTIONS (1)
  - PALPITATIONS [None]
